FAERS Safety Report 5419820-X (Version None)
Quarter: 2007Q3

REPORT INFORMATION
  Report Type: 
  Country: None (occurrence: None)
  Receive Date: 20070820
  Receipt Date: 20070816
  Transmission Date: 20080115
  Serious: Yes (Other)
  Sender: FDA-Public Use
  Company Number: BR-ASTRAZENECA-2007UW19820

PATIENT
  Age: 2 Year
  Sex: Female
  Weight: 12 kg

DRUGS (1)
  1. SELOZOK [Suspect]
     Route: 048
     Dates: start: 20070805

REACTIONS (2)
  - ACCIDENTAL DRUG INTAKE BY CHILD [None]
  - MEDICATION ERROR [None]
